FAERS Safety Report 13984180 (Version 1)
Quarter: 2017Q3

REPORT INFORMATION
  Report Type: Spontaneous
  Country: IN (occurrence: IN)
  Receive Date: 20170918
  Receipt Date: 20170918
  Transmission Date: 20171128
  Serious: Yes (Other)
  Sender: FDA-Public Use
  Company Number: PHHY2017IN134765

PATIENT

DRUGS (7)
  1. DIGOXIN. [Suspect]
     Active Substance: DIGOXIN
     Indication: TACHYCARDIA FOETAL
     Dosage: MATERNAL DOSE: 0.2 MG 0.12 HOURLY
     Route: 064
  2. FLECAINIDE [Suspect]
     Active Substance: FLECAINIDE
     Indication: TACHYCARDIA FOETAL
     Dosage: MATERNAL DOSE: 50 MG 0.12 HOURLY
     Route: 064
  3. ADENOSINE. [Concomitant]
     Active Substance: ADENOSINE
     Indication: TACHYCARDIA FOETAL
     Dosage: 200 UG/KG, UNK
     Route: 042
  4. METOPROLOL. [Suspect]
     Active Substance: METOPROLOL
     Indication: SUPRAVENTRICULAR TACHYCARDIA
     Route: 040
  5. METOPROLOL. [Suspect]
     Active Substance: METOPROLOL
     Indication: NODAL ARRHYTHMIA
  6. DIGOXIN. [Suspect]
     Active Substance: DIGOXIN
     Indication: FOETAL EXPOSURE DURING PREGNANCY
     Dosage: MATERNAL
     Route: 064
  7. FLECAINIDE [Suspect]
     Active Substance: FLECAINIDE
     Indication: FOETAL EXPOSURE DURING PREGNANCY
     Dosage: MATERNAL DOSE: 100 MG Q8 HOURLY
     Route: 064

REACTIONS (4)
  - Premature baby [Unknown]
  - Foetal exposure during pregnancy [Unknown]
  - Low birth weight baby [Unknown]
  - Therapy non-responder [Unknown]
